FAERS Safety Report 5896754-8 (Version None)
Quarter: 2008Q3

REPORT INFORMATION
  Report Type: 
  Country: None (occurrence: None)
  Receive Date: 20080924
  Receipt Date: 20071101
  Transmission Date: 20090109
  Serious: Yes (Hospitalization)
  Sender: FDA-Public Use
  Company Number: US-ASTRAZENECA-2007UW25465

PATIENT
  Age: 35 Year
  Sex: Female

DRUGS (3)
  1. SEROQUEL [Suspect]
     Route: 048
     Dates: start: 20071025, end: 20071028
  2. SEROQUEL [Suspect]
     Route: 048
     Dates: start: 20071029, end: 20071030
  3. LAMICTAL [Concomitant]

REACTIONS (2)
  - DYSTONIA [None]
  - RESTLESSNESS [None]
